FAERS Safety Report 5592881-3 (Version None)
Quarter: 2008Q1

REPORT INFORMATION
  Report Type: 
  Country: None (occurrence: None)
  Receive Date: 20080116
  Receipt Date: 20080108
  Transmission Date: 20080703
  Serious: Yes (Other)
  Sender: FDA-Public Use
  Company Number: PHRM2007FR01289

PATIENT
  Age: 85 Year
  Sex: Female
  Weight: 42 kg

DRUGS (7)
  1. TRILEPTAL [Suspect]
     Indication: EPILEPSY
     Dosage: 750 MG/DAY
     Route: 048
     Dates: start: 20061201, end: 20070618
  2. PENICILLIN [Suspect]
  3. EXELON [Suspect]
     Indication: DEMENTIA
     Dosage: 1,5 MG/DAY
     Route: 048
     Dates: start: 20070212
  4. FOSAVANCE [Suspect]
     Indication: OSTEOPOROSIS
     Dosage: 1G/DAY
     Route: 048
     Dates: start: 20070226, end: 20070326
  5. DEROXAT [Suspect]
     Route: 048
  6. TIENAM [Suspect]
  7. BACTRIM [Suspect]

REACTIONS (4)
  - DRUG INTERACTION [None]
  - ECZEMA [None]
  - ECZEMA WEEPING [None]
  - PRURITUS [None]
